FAERS Safety Report 9549307 (Version 1)
Quarter: 2013Q3

REPORT INFORMATION
  Report Type: Spontaneous
  Country: US (occurrence: None)
  Receive Date: 20130923
  Receipt Date: 20130923
  Transmission Date: 20140515
  Serious: Yes (Other)
  Sender: FDA-Public Use
  Company Number: None

PATIENT
  Age: 91 Year
  Sex: Male
  Weight: 62.6 kg

DRUGS (1)
  1. ALBUTEROL/IPRATROPIUM [Suspect]
     Indication: ASTHMA
     Dosage: 2 PUFFS
     Route: 048
     Dates: end: 20130920

REACTIONS (1)
  - Drug ineffective [None]
